FAERS Safety Report 24635765 (Version 2)
Quarter: 2025Q1

REPORT INFORMATION
  Report Type: Spontaneous
  Country: US (occurrence: US)
  Receive Date: 20241119
  Receipt Date: 20250207
  Transmission Date: 20250409
  Serious: No
  Sender: STALLERGENES
  Company Number: US-STALCOR-2024-AER-02217

PATIENT
  Sex: Male

DRUGS (1)
  1. PALFORZIA [Suspect]
     Active Substance: PEANUT
     Indication: Food allergy
     Dosage: 300 MG: MAINTENANCE: MIX CONTENTS OF ONE SACHET WELL WITH SEMI SOLID FOOD AS DIRECTED AND CONSUME ON
     Route: 048

REACTIONS (4)
  - Food allergy [Unknown]
  - Malaise [Recovered/Resolved]
  - Product dose omission issue [Unknown]
  - Product dose omission issue [Recovered/Resolved]
